FAERS Safety Report 10086421 (Version 1)
Quarter: 2014Q2

REPORT INFORMATION
  Report Type: Spontaneous
  Country: US (occurrence: None)
  Receive Date: 20140417
  Receipt Date: 20140417
  Transmission Date: 20141212
  Serious: Yes (Hospitalization)
  Sender: FDA-Public Use
  Company Number: None

PATIENT
  Age: 69 Year
  Sex: Female
  Weight: 89.5 kg

DRUGS (3)
  1. SOFOSBUVIR [Suspect]
     Indication: HEPATITIS C
     Route: 048
     Dates: start: 20140106
  2. SIMEPREVIR [Suspect]
     Indication: HEPATITIS C
     Route: 048
     Dates: start: 20140204, end: 20140224
  3. ERCP [Concomitant]

REACTIONS (5)
  - Small intestinal obstruction [None]
  - Haemolytic anaemia [None]
  - Liver transplant [None]
  - Post procedural complication [None]
  - Post procedural bile leak [None]
